FAERS Safety Report 6679441-8 (Version None)
Quarter: 2010Q2

REPORT INFORMATION
  Report Type: 
  Country: None (occurrence: None)
  Receive Date: 20100413
  Receipt Date: 20100407
  Transmission Date: 20101027
  Serious: Yes (Hospitalization)
  Sender: FDA-Public Use
  Company Number: BE-ROCHE-696209

PATIENT
  Age: 60 Year
  Sex: Female
  Weight: 45 kg

DRUGS (2)
  1. AVASTIN [Suspect]
     Route: 065
     Dates: start: 20100301
  2. NOLVADEX [Concomitant]
     Route: 048
     Dates: start: 20070101

REACTIONS (3)
  - DECREASED APPETITE [None]
  - DEHYDRATION [None]
  - FALL [None]
